FAERS Safety Report 24160131 (Version 1)
Quarter: 2024Q3

REPORT INFORMATION
  Report Type: Spontaneous
  Country: EG (occurrence: EG)
  Receive Date: 20240801
  Receipt Date: 20240801
  Transmission Date: 20241017
  Serious: Yes (Hospitalization, Other)
  Sender: NOVO NORDISK
  Company Number: EG-NOVOPROD-1233939

PATIENT
  Age: 619 Month
  Sex: Female
  Weight: 90 kg

DRUGS (11)
  1. CYMBALTA [Concomitant]
     Active Substance: DULOXETINE HYDROCHLORIDE
     Indication: Psoriatic arthropathy
     Dosage: 1 TAB/AFTER LUNCH (STARTED FROM 15 DAYS AGO AND STOPPED)
     Route: 048
  2. NOVORAPID [Suspect]
     Active Substance: INSULIN ASPART
     Indication: Diabetes mellitus
     Dosage: 20 U,15 U AND 10 U BEFORE EACH MEAL
     Route: 058
  3. NOVORAPID [Suspect]
     Active Substance: INSULIN ASPART
     Dosage: 25 IU, 20 IU AND 15 IU (PER EACH MAIN MEAL)
     Route: 058
  4. TRESIBA [Suspect]
     Active Substance: INSULIN DEGLUDEC
     Indication: Diabetes mellitus
     Dosage: 10 IU, QD
     Route: 058
     Dates: start: 2022
  5. XIGDUO XR [Concomitant]
     Active Substance: DAPAGLIFLOZIN PROPANEDIOL\METFORMIN HYDROCHLORIDE
     Indication: Diabetes mellitus
     Dosage: 2 TABS/DAY (STARTED FROM MORE THAN A YEAR AGO)
     Route: 048
  6. EZETIMIBE\SIMVASTATIN [Concomitant]
     Active Substance: EZETIMIBE\SIMVASTATIN
     Indication: Blood triglycerides abnormal
     Dosage: 1 TAB/DAY~ (STARTED FROM 3 MONTHS AGO)
     Route: 048
  7. EZETIMIBE\SIMVASTATIN [Concomitant]
     Active Substance: EZETIMIBE\SIMVASTATIN
     Indication: Blood cholesterol abnormal
  8. DIMRA [Concomitant]
     Indication: Muscle relaxant therapy
     Dosage: 1 TAB/NIGHT AT NEED (EVERY OTHER DAY)
     Route: 048
  9. EXFORGE HCT [Concomitant]
     Active Substance: AMLODIPINE BESYLATE\HYDROCHLOROTHIAZIDE\VALSARTAN
     Indication: Hypertension
     Dosage: 1 TAB/DAY (STARTED FROM 6 MONTHS AGO)
     Route: 048
  10. METHYLTECHNO [Concomitant]
     Indication: Diabetes mellitus
  11. METHYLTECHNO [Concomitant]
     Indication: Supplementation therapy
     Dosage: 1 FILM/DAY (STARTED FROM 6 OR 7 MONTHS AGO)
     Route: 060

REACTIONS (9)
  - Intervertebral disc protrusion [Not Recovered/Not Resolved]
  - Pain [Not Recovered/Not Resolved]
  - Pruritus [Not Recovered/Not Resolved]
  - Fungal foot infection [Unknown]
  - Muscle spasms [Unknown]
  - Hyperglycaemia [Recovered/Resolved]
  - Injection site fibrosis [Not Recovered/Not Resolved]
  - Drug ineffective [Unknown]
  - Product storage error [Unknown]
